FAERS Safety Report 15101694 (Version 1)
Quarter: 2018Q3

REPORT INFORMATION
  Report Type: Spontaneous
  Country: US (occurrence: US)
  Receive Date: 20180703
  Receipt Date: 20180703
  Transmission Date: 20181010
  Serious: No
  Sender: FDA-Public Use
  Company Number: US-ASTRAZENECA-2018SE73956

PATIENT
  Age: 60 Year
  Sex: Male

DRUGS (3)
  1. FASENRA [Suspect]
     Active Substance: BENRALIZUMAB
     Indication: EOSINOPHIL COUNT INCREASED
     Dosage: 30 MG
     Route: 058
  2. FASENRA [Suspect]
     Active Substance: BENRALIZUMAB
     Indication: ASTHMA
     Dosage: 30 MG
     Route: 058
  3. INHALED CORTICOSTEROIDS [Concomitant]
     Indication: ASTHMA PROPHYLAXIS

REACTIONS (4)
  - Headache [Unknown]
  - Formication [Unknown]
  - Influenza like illness [Unknown]
  - Somnolence [Unknown]
